FAERS Safety Report 11365582 (Version 1)
Quarter: 2015Q3

REPORT INFORMATION
  Report Type: Other
  Country: GB (occurrence: GB)
  Receive Date: 20150811
  Receipt Date: 20150811
  Transmission Date: 20151125
  Serious: Yes (Other)
  Sender: FDA-Public Use
  Company Number: GB-MYLANLABS-2015M1025804

PATIENT

DRUGS (3)
  1. SIMVASTATIN. [Suspect]
     Active Substance: SIMVASTATIN
     Indication: MYOCARDIAL INFARCTION
     Dosage: UNK
     Route: 048
     Dates: start: 20110215, end: 20110315
  2. MAGNESIUM [Concomitant]
     Active Substance: MAGNESIUM
  3. COENZYME Q10 [Concomitant]
     Active Substance: UBIDECARENONE

REACTIONS (7)
  - Abnormal loss of weight [Not Recovered/Not Resolved]
  - Withdrawal syndrome [Unknown]
  - Irritable bowel syndrome [Unknown]
  - Sucrose intolerance [Not Recovered/Not Resolved]
  - Myalgia [Not Recovered/Not Resolved]
  - Dyspepsia [Recovered/Resolved]
  - Muscle tightness [Not Recovered/Not Resolved]

NARRATIVE: CASE EVENT DATE: 2011
